FAERS Safety Report 11778779 (Version 1)
Quarter: 2015Q4

REPORT INFORMATION
  Report Type: Spontaneous
  Country: US (occurrence: US)
  Receive Date: 20151125
  Receipt Date: 20151125
  Transmission Date: 20160304
  Serious: Yes (Hospitalization, Other)
  Sender: FDA-Public Use
  Company Number: US-ASTELLAS-2015US043789

PATIENT
  Age: 75 Year
  Sex: Male

DRUGS (3)
  1. AZATHIOPRINE. [Concomitant]
     Active Substance: AZATHIOPRINE
     Indication: LUNG TRANSPLANT
     Dosage: UNK, UNKNOWN FREQ.
     Route: 065
  2. PREDNISONE. [Concomitant]
     Active Substance: PREDNISONE
     Indication: LUNG TRANSPLANT
     Dosage: UNK, UNKNOWN FREQ.
     Route: 065
  3. TACROLIMUS. [Suspect]
     Active Substance: TACROLIMUS
     Indication: LUNG TRANSPLANT
     Dosage: UNK UNK, UNKNOWN FREQUENCY (GOAL = 5-6 NG/ML)
     Route: 065

REACTIONS (7)
  - Toxicity to various agents [Unknown]
  - Primary effusion lymphoma [Recovering/Resolving]
  - Off label use [Unknown]
  - Chronic kidney disease [Unknown]
  - Malignant pleural effusion [Unknown]
  - Small intestinal obstruction [Unknown]
  - Primary effusion lymphoma [Unknown]

NARRATIVE: CASE EVENT DATE: 2014
